FAERS Safety Report 9012352 (Version 1)
Quarter: 2013Q1

REPORT INFORMATION
  Report Type: Spontaneous
  Country: HR (occurrence: HR)
  Receive Date: 20130114
  Receipt Date: 20130114
  Transmission Date: 20140127
  Serious: Yes (Other)
  Sender: FDA-Public Use
  Company Number: HR-TEVA-379116ISR

PATIENT
  Age: 65 Year
  Sex: Female

DRUGS (3)
  1. GLUFORMIN [Suspect]
     Indication: TYPE 2 DIABETES MELLITUS
     Dosage: 2 GRAM DAILY;
     Route: 048
     Dates: start: 20121016, end: 20121101
  2. AMARYL [Concomitant]
     Indication: TYPE 2 DIABETES MELLITUS
     Dosage: 3 MILLIGRAM DAILY;
     Route: 048
  3. IRUZID [Concomitant]
     Indication: ESSENTIAL HYPERTENSION
     Dosage: 1 DOSAGE FORMS DAILY; DOSAGE FORMS IS 20 MG LISNOPRIL + 12.5 MG HYDROCHLOROTHIAZIDE
     Route: 048

REACTIONS (6)
  - Rash [Unknown]
  - Abdominal pain [Unknown]
  - Nausea [Unknown]
  - Eye pruritus [Unknown]
  - Erythema [Unknown]
  - Pruritus [Unknown]
